FAERS Safety Report 9772035 (Version 1)
Quarter: 2013Q4

REPORT INFORMATION
  Report Type: Spontaneous
  Country: US (occurrence: None)
  Receive Date: 20131218
  Receipt Date: 20131218
  Transmission Date: 20140711
  Serious: No
  Sender: FDA-Public Use
  Company Number: None

PATIENT
  Age: 53 Year
  Sex: Male
  Weight: 88.45 kg

DRUGS (1)
  1. CELEBREX [Suspect]
     Indication: MUSCULOSKELETAL PAIN
     Route: 048
     Dates: start: 20131120, end: 20131206

REACTIONS (6)
  - Hypersensitivity [None]
  - Rash [None]
  - Dyspnoea [None]
  - Erythema [None]
  - Swelling face [None]
  - Viral infection [None]
